FAERS Safety Report 9443206 (Version 1)
Quarter: 2013Q3

REPORT INFORMATION
  Report Type: Spontaneous
  Country: BR (occurrence: BR)
  Receive Date: 20130806
  Receipt Date: 20130806
  Transmission Date: 20140515
  Serious: Yes (Other)
  Sender: FDA-Public Use
  Company Number: BR-009507513-1307BRA015088

PATIENT
  Sex: Female

DRUGS (2)
  1. NUVARING [Suspect]
     Dosage: UNK
     Route: 067
  2. NUVARING [Suspect]
     Dosage: UNK
     Route: 067
     Dates: start: 20130801

REACTIONS (2)
  - Surgery [Unknown]
  - Drug administration error [Unknown]
